FAERS Safety Report 9116121 (Version 1)
Quarter: 2013Q1

REPORT INFORMATION
  Report Type: Spontaneous
  Country: GB (occurrence: GB)
  Receive Date: 20130225
  Receipt Date: 20130225
  Transmission Date: 20140127
  Serious: Yes (Life-Threatening, Hospitalization, Other)
  Sender: FDA-Public Use
  Company Number: GB-B.I. PHARMACEUTICALS,INC./RIDGEFIELD-2013-UK-00260UK

PATIENT
  Age: 81 Year
  Sex: Male

DRUGS (10)
  1. SPIRIVA RESPIMAT [Suspect]
     Indication: ASTHMA
     Dosage: 5 MCG
     Route: 055
     Dates: end: 20130127
  2. AMLODIPINE [Concomitant]
  3. FUROSEMIDE [Concomitant]
  4. OMEPRAZOLE [Concomitant]
  5. RAMIPRIL [Concomitant]
  6. SALBUTAMOL [Concomitant]
  7. SERETIDE [Concomitant]
  8. SIMVASTATIN [Concomitant]
  9. TAMSULOSIN [Concomitant]
  10. WARFARIN [Concomitant]

REACTIONS (2)
  - Cardiac arrest [Unknown]
  - Heart injury [Unknown]
